FAERS Safety Report 6961285-0 (Version None)
Quarter: 2010Q3

REPORT INFORMATION
  Report Type: 
  Country: None (occurrence: None)
  Receive Date: 20100901
  Receipt Date: 20100826
  Transmission Date: 20110219
  Serious: Yes (Life-Threatening, Disabling, Other)
  Sender: FDA-Public Use
  Company Number: A0877887A

PATIENT
  Age: 67 Year
  Sex: Female

DRUGS (5)
  1. IMITREX [Suspect]
     Indication: HEADACHE
     Dosage: 25MG PER DAY
     Route: 048
     Dates: start: 20100713, end: 20100823
  2. LEXAPRO [Concomitant]
  3. REMERON [Concomitant]
  4. TRAZODONE HCL [Concomitant]
  5. RISPERDAL [Concomitant]

REACTIONS (5)
  - ACTIVITIES OF DAILY LIVING IMPAIRED [None]
  - COORDINATION ABNORMAL [None]
  - DRUG PRESCRIBING ERROR [None]
  - INCOHERENT [None]
  - SERUM SEROTONIN INCREASED [None]
